FAERS Safety Report 5683431-1 (Version None)
Quarter: 2008Q1

REPORT INFORMATION
  Report Type: 
  Country: None (occurrence: None)
  Receive Date: 20080326
  Receipt Date: 20080311
  Transmission Date: 20080703
  Serious: Yes (Other)
  Sender: FDA-Public Use
  Company Number: 2008S1003038

PATIENT
  Age: 60 Year
  Sex: Male

DRUGS (3)
  1. AMLODIPINE DURA (AMLODIPINE MESILATE) [Suspect]
     Indication: DRUG USE FOR UNKNOWN INDICATION
     Dosage: ;ORAL
     Route: 048
     Dates: start: 20070221, end: 20070221
  2. ALLOPURINOL [Suspect]
     Indication: DRUG USE FOR UNKNOWN INDICATION
     Dosage: ;ORAL
     Route: 048
     Dates: start: 20080221, end: 20080221
  3. OLMESARTAN MEDOXOMIL [Suspect]
     Indication: DRUG USE FOR UNKNOWN INDICATION
     Dosage: ;ORAL
     Route: 048
     Dates: start: 20080221, end: 20080221

REACTIONS (2)
  - HYPOTENSION [None]
  - OVERDOSE [None]
